FAERS Safety Report 6303955-3 (Version None)
Quarter: 2009Q3

REPORT INFORMATION
  Report Type: 
  Country: None (occurrence: None)
  Receive Date: 20090810
  Receipt Date: 20090810
  Transmission Date: 20100115
  Serious: Yes (Other)
  Sender: FDA-Public Use
  Company Number: None

PATIENT
  Age: 48 Year
  Sex: Female
  Weight: 77.1115 kg

DRUGS (1)
  1. LYRICA [Suspect]
     Indication: FIBROMYALGIA
     Dosage: 150 MG 75 MG TWICE DAILY PO
     Route: 048
     Dates: start: 20090731, end: 20090808

REACTIONS (10)
  - BALANCE DISORDER [None]
  - CONFUSIONAL STATE [None]
  - COORDINATION ABNORMAL [None]
  - CRYING [None]
  - DRY MOUTH [None]
  - DYSARTHRIA [None]
  - FEELING ABNORMAL [None]
  - SOMNOLENCE [None]
  - SWELLING FACE [None]
  - THINKING ABNORMAL [None]
